FAERS Safety Report 21242258 (Version 1)
Quarter: 2022Q3

REPORT INFORMATION
  Report Type: Spontaneous
  Country: US (occurrence: US)
  Receive Date: 20220823
  Receipt Date: 20220823
  Transmission Date: 20221027
  Serious: No
  Sender: FDA-Public Use
  Company Number: US-Hikma Pharmaceuticals USA Inc.-US-H14001-21-04888

PATIENT
  Sex: Female

DRUGS (2)
  1. METHOTREXATE [Suspect]
     Active Substance: METHOTREXATE
     Indication: Product used for unknown indication
     Dosage: 8 TABLETS ONCE WEEKLY
     Route: 048
  2. XELJANZ [Suspect]
     Active Substance: TOFACITINIB CITRATE
     Indication: Product used for unknown indication
     Route: 065

REACTIONS (7)
  - Pain in extremity [Unknown]
  - Axillary mass [Unknown]
  - Neuralgia [Unknown]
  - Oedema peripheral [Unknown]
  - Skin discolouration [Unknown]
  - Paraesthesia [Unknown]
  - Hypoaesthesia [Unknown]
